FAERS Safety Report 18291013 (Version 1)
Quarter: 2020Q3

REPORT INFORMATION
  Report Type: Spontaneous
  Country: US (occurrence: US)
  Receive Date: 20200921
  Receipt Date: 20200921
  Transmission Date: 20201103
  Serious: Yes (Other)
  Sender: FDA-Public Use
  Company Number: US-INDIVIOR US-INDV-126379-2020

PATIENT
  Age: 25 Year
  Sex: Male

DRUGS (16)
  1. VIVITROL [Suspect]
     Active Substance: NALTREXONE
     Indication: DRUG DEPENDENCE
     Dosage: 380 MILLIGRAM, QMO
     Route: 030
     Dates: start: 2016, end: 2016
  2. NALTREXONE [Concomitant]
     Active Substance: NALTREXONE
     Indication: PRODUCT USED FOR UNKNOWN INDICATION
     Dosage: UNK
     Route: 065
     Dates: start: 20170726, end: 201707
  3. SUBOXONE [Suspect]
     Active Substance: BUPRENORPHINE HYDROCHLORIDE\NALOXONE HYDROCHLORIDE
     Dosage: 4MG, ONE TIME DOSE + 6MG, QAM
     Route: 048
     Dates: start: 20170719, end: 20170719
  4. PROZAC [Concomitant]
     Active Substance: FLUOXETINE HYDROCHLORIDE
     Dosage: UNK
     Route: 065
     Dates: start: 20170731
  5. SUBOXONE [Suspect]
     Active Substance: BUPRENORPHINE HYDROCHLORIDE\NALOXONE HYDROCHLORIDE
     Indication: DRUG WITHDRAWAL SYNDROME
     Dosage: 1 MILLIGRAM, BID
     Route: 048
     Dates: start: 201707, end: 201707
  6. SUBOXONE [Suspect]
     Active Substance: BUPRENORPHINE HYDROCHLORIDE\NALOXONE HYDROCHLORIDE
     Dosage: 2 MILLIGRAM, BID (2 DAYS)
     Route: 048
     Dates: start: 201707, end: 201707
  7. LEXAPRO [Concomitant]
     Active Substance: ESCITALOPRAM OXALATE
     Indication: BODY DYSMORPHIC DISORDER
     Dosage: UNK
     Route: 065
  8. SUBOXONE [Suspect]
     Active Substance: BUPRENORPHINE HYDROCHLORIDE\NALOXONE HYDROCHLORIDE
     Dosage: 3 MILLIGRAM, BID (1 DAY)
     Route: 048
     Dates: start: 201707, end: 201707
  9. SUBOXONE [Suspect]
     Active Substance: BUPRENORPHINE HYDROCHLORIDE\NALOXONE HYDROCHLORIDE
     Dosage: 4 MILLIGRAM, BID (1 DAY)
     Route: 048
     Dates: start: 201707, end: 201707
  10. VIVITROL [Suspect]
     Active Substance: NALTREXONE
     Dosage: 380 MILLIGRAM, QMO
     Route: 030
     Dates: start: 2017, end: 2017
  11. SUBOXONE [Suspect]
     Active Substance: BUPRENORPHINE HYDROCHLORIDE\NALOXONE HYDROCHLORIDE
     Dosage: 6 MILLIGRAM, BID
     Route: 048
     Dates: start: 201707, end: 201707
  12. PROZAC [Concomitant]
     Active Substance: FLUOXETINE HYDROCHLORIDE
     Indication: BODY DYSMORPHIC DISORDER
     Dosage: UNK
     Route: 065
  13. SUBOXONE [Suspect]
     Active Substance: BUPRENORPHINE HYDROCHLORIDE\NALOXONE HYDROCHLORIDE
     Dosage: UNK
     Route: 048
     Dates: start: 201707, end: 20170722
  14. EFFEXOR [Concomitant]
     Active Substance: VENLAFAXINE HYDROCHLORIDE
     Indication: BODY DYSMORPHIC DISORDER
     Dosage: UNK
     Route: 065
  15. VIVITROL [Suspect]
     Active Substance: NALTREXONE
     Dosage: 380 MILLIGRAM, QMO
     Route: 030
     Dates: start: 20170731
  16. WELLBUTRIN [Concomitant]
     Active Substance: BUPROPION HYDROCHLORIDE
     Indication: BODY DYSMORPHIC DISORDER
     Dosage: UNK
     Route: 065

REACTIONS (22)
  - Increased appetite [Unknown]
  - Depression [Not Recovered/Not Resolved]
  - Constipation [Unknown]
  - Fatigue [Recovered/Resolved]
  - Decreased appetite [Unknown]
  - Social avoidant behaviour [Recovered/Resolved]
  - Inappropriate schedule of product administration [Recovered/Resolved]
  - Anxiety [Not Recovered/Not Resolved]
  - Product use issue [Recovered/Resolved]
  - Abdominal pain [Recovered/Resolved]
  - Slow speech [Unknown]
  - Judgement impaired [Recovered/Resolved]
  - Insomnia [Recovered/Resolved]
  - Disturbance in attention [Recovered/Resolved]
  - Self-injurious ideation [Unknown]
  - Intentional underdose [Recovered/Resolved]
  - Dizziness [Recovered/Resolved]
  - Drug dependence [Not Recovered/Not Resolved]
  - Nausea [Recovered/Resolved]
  - Memory impairment [Recovered/Resolved]
  - Drug withdrawal syndrome [Recovered/Resolved]
  - Back pain [Unknown]

NARRATIVE: CASE EVENT DATE: 201707
